FAERS Safety Report 9216072 (Version 2)
Quarter: 2013Q4

REPORT INFORMATION
  Report Type: Spontaneous
  Country: US (occurrence: US)
  Receive Date: 20130408
  Receipt Date: 20131111
  Transmission Date: 20140711
  Serious: Yes (Other)
  Sender: FDA-Public Use
  Company Number: US-BAYER-2013-043021

PATIENT
  Age: 22 Year
  Sex: Female

DRUGS (5)
  1. YASMIN [Suspect]
     Indication: CONTRACEPTION
     Dosage: UNK
     Route: 048
     Dates: start: 2004
  2. ACETAMINOPHEN W/OXYCODONE [Concomitant]
     Dosage: UNK
     Route: 048
     Dates: start: 20061021
  3. PROMETHAZINE [Concomitant]
     Dosage: 25 MG, UNK
     Route: 048
     Dates: start: 20061021
  4. ZELNORM [Concomitant]
     Route: 048
  5. MIRALAX [Concomitant]
     Route: 048

REACTIONS (6)
  - Cholecystectomy [None]
  - Pain [None]
  - Injury [None]
  - Pain [None]
  - Cholecystitis chronic [None]
  - Biliary dyskinesia [None]
